FAERS Safety Report 9799584 (Version 3)
Quarter: 2015Q3

REPORT INFORMATION
  Report Type: Spontaneous
  Country: US (occurrence: US)
  Receive Date: 20140106
  Receipt Date: 20150806
  Transmission Date: 20151125
  Serious: No
  Sender: FDA-Public Use
  Company Number: US-GILEAD-2010-0031396

PATIENT
  Age: 61 Year
  Sex: Female
  Weight: 89.81 kg

DRUGS (19)
  1. DIGOXIN. [Concomitant]
     Active Substance: DIGOXIN
  2. FLUOXETINE [Concomitant]
     Active Substance: FLUOXETINE\FLUOXETINE HYDROCHLORIDE
  3. TOPROL XL [Concomitant]
     Active Substance: METOPROLOL SUCCINATE
  4. SYMBICORT [Concomitant]
     Active Substance: BUDESONIDE\FORMOTEROL FUMARATE DIHYDRATE
  5. AMBIEN CR [Concomitant]
     Active Substance: ZOLPIDEM TARTRATE
  6. LOTEPREDNOL ETABONATE/TOBRAMYCIN [Concomitant]
  7. LETAIRIS [Suspect]
     Active Substance: AMBRISENTAN
     Indication: PULMONARY ARTERIAL HYPERTENSION
     Route: 048
     Dates: start: 20070901
  8. ATROPINE SULFATE/DIPHENOXYLATE HYDROCHLORIDE [Concomitant]
  9. K-DUR [Concomitant]
     Active Substance: POTASSIUM CHLORIDE
  10. VIAGRA [Concomitant]
     Active Substance: SILDENAFIL CITRATE
  11. COUMADIN [Concomitant]
     Active Substance: WARFARIN SODIUM
  12. SPIRIVA [Concomitant]
     Active Substance: TIOTROPIUM BROMIDE MONOHYDRATE
  13. ALBUTEROL AER [Concomitant]
  14. CLONAZEPAM. [Concomitant]
     Active Substance: CLONAZEPAM
  15. FUROSEMIDE. [Concomitant]
     Active Substance: FUROSEMIDE
  16. FLONASE [Concomitant]
     Active Substance: FLUTICASONE PROPIONATE
  17. TUMS [Concomitant]
     Active Substance: CALCIUM CARBONATE
  18. OXYGEN. [Concomitant]
     Active Substance: OXYGEN
  19. TYLENOL/COD TAB#3 [Concomitant]

REACTIONS (1)
  - Rash [Unknown]
